FAERS Safety Report 10717210 (Version 1)
Quarter: 2015Q1

REPORT INFORMATION
  Report Type: Spontaneous
  Country: DE (occurrence: DE)
  Receive Date: 20150116
  Receipt Date: 20150116
  Transmission Date: 20150721
  Serious: Yes (Hospitalization)
  Sender: FDA-Public Use
  Company Number: DE-ABBVIE-15P-062-1333109-00

PATIENT
  Age: 66 Year
  Sex: Male

DRUGS (1)
  1. DUODOPA [Suspect]
     Active Substance: CARBIDOPA\LEVODOPA
     Indication: PARKINSON^S DISEASE
     Dosage: MD 6.0ML, CRD 3.3-3.4ML/H, ED 1.3ML
     Route: 050
     Dates: start: 20141117

REACTIONS (1)
  - Lumbar spinal stenosis [Unknown]

NARRATIVE: CASE EVENT DATE: 201411
